FAERS Safety Report 19214535 (Version 3)
Quarter: 2021Q2

REPORT INFORMATION
  Report Type: Report from Study
  Country: None (occurrence: BR)
  Receive Date: 20210505
  Receipt Date: 20210604
  Transmission Date: 20210717
  Serious: Yes (Disabling, Other)
  Sender: FDA-Public Use
  Company Number: BR-ABBVIE-21K-020-3881477-00

PATIENT
  Age: 42 Year
  Sex: Female
  Weight: 45.9 kg

DRUGS (11)
  1. HUMIRA [Suspect]
     Active Substance: ADALIMUMAB
     Indication: RHEUMATOID ARTHRITIS
     Route: 058
     Dates: start: 20150727
  2. LACTOSE [Suspect]
     Active Substance: LACTOSE
     Indication: PRODUCT USED FOR UNKNOWN INDICATION
     Route: 065
  3. THIMEROSAL [Suspect]
     Active Substance: THIMEROSAL
     Indication: PRODUCT USED FOR UNKNOWN INDICATION
     Route: 065
     Dates: start: 2009
  4. METHOTREXATE. [Suspect]
     Active Substance: METHOTREXATE
     Indication: RHEUMATOID ARTHRITIS
     Dosage: EVERY SATURDAY
     Route: 065
     Dates: start: 2009
  5. CONDRES ULTRA [Concomitant]
     Indication: INFLAMMATION
  6. VITAMIN D [Concomitant]
     Active Substance: VITAMIN D NOS
     Indication: VITAMIN SUPPLEMENTATION
     Dates: start: 2018
  7. CONDRES ULTRA [Concomitant]
     Indication: ARTHRALGIA
  8. GLUTEN [Suspect]
     Active Substance: WHEAT GLUTEN
     Indication: PRODUCT USED FOR UNKNOWN INDICATION
     Route: 065
  9. VITAMIN D [Concomitant]
     Active Substance: VITAMIN D NOS
     Indication: VITAMIN SUPPLEMENTATION
     Dates: start: 2009, end: 2018
  10. CONDRES ULTRA [Concomitant]
     Indication: PAIN IN EXTREMITY
  11. CONDRES ULTRA [Concomitant]
     Indication: BONE DISORDER
     Dosage: CONTINUOUS USE, EVERY DAY
     Dates: start: 2021

REACTIONS (13)
  - Chromaturia [Not Recovered/Not Resolved]
  - Culture urine positive [Not Recovered/Not Resolved]
  - Mobility decreased [Recovered/Resolved]
  - Rheumatoid arthritis [Recovered/Resolved]
  - Pain in extremity [Recovered/Resolved]
  - Food allergy [Unknown]
  - Nasal pruritus [Recovered/Resolved]
  - Vitamin D deficiency [Recovered/Resolved]
  - Bladder pain [Recovered/Resolved]
  - Pruritus [Recovered/Resolved]
  - Allergy to chemicals [Unknown]
  - Lactose intolerance [Unknown]
  - Eye pruritus [Recovered/Resolved]

NARRATIVE: CASE EVENT DATE: 2018
